FAERS Safety Report 4529317-7 (Version None)
Quarter: 2004Q4

REPORT INFORMATION
  Report Type: 
  Country: None (occurrence: None)
  Receive Date: 20041202
  Receipt Date: 20040820
  Transmission Date: 20050328
  Serious: No
  Sender: FDA-Public Use
  Company Number: 200420298BWH

PATIENT
  Age: 79 Year
  Sex: Male
  Weight: 95.2554 kg

DRUGS (5)
  1. LEVITRA [Suspect]
     Indication: ERECTILE DYSFUNCTION
     Dosage: 10 MG, OW, ORAL
     Route: 048
     Dates: start: 20040701, end: 20040801
  2. LEVITRA [Suspect]
     Dosage: 20 MG, ONCE, ORAL
     Route: 048
     Dates: start: 20040819
  3. PLAVIX [Concomitant]
  4. MESTINON [Concomitant]
  5. VASOTEC [Concomitant]

REACTIONS (2)
  - ERECTILE DYSFUNCTION [None]
  - EYELID OEDEMA [None]
